FAERS Safety Report 14148811 (Version 1)
Quarter: 2017Q4

REPORT INFORMATION
  Report Type: Spontaneous
  Country: US (occurrence: None)
  Receive Date: 20171031
  Receipt Date: 20171031
  Transmission Date: 20180321
  Serious: No
  Sender: FDA-Public Use
  Company Number: None

PATIENT
  Age: 63 Year

DRUGS (1)
  1. HARVONI [Suspect]
     Active Substance: LEDIPASVIR\SOFOSBUVIR
     Indication: HEPATITIS C
     Dosage: 90/400MG DAILY BY MOUTH
     Route: 048
     Dates: start: 20170921, end: 20170926

REACTIONS (4)
  - Swollen tongue [None]
  - Angioedema [None]
  - Therapy cessation [None]
  - Cough [None]

NARRATIVE: CASE EVENT DATE: 20170925
